FAERS Safety Report 9685317 (Version 1)
Quarter: 2013Q4

REPORT INFORMATION
  Report Type: Spontaneous
  Country: FR (occurrence: FR)
  Receive Date: 20131113
  Receipt Date: 20131113
  Transmission Date: 20140711
  Serious: Yes (Hospitalization, Other)
  Sender: FDA-Public Use
  Company Number: FR-JNJFOC-20131104064

PATIENT
  Age: 50 Year
  Sex: Male

DRUGS (3)
  1. REMICADE [Suspect]
     Indication: PSORIASIS
     Dosage: 300 MG/24 H
     Route: 042
     Dates: start: 20130710
  2. REMICADE [Suspect]
     Indication: PSORIASIS
     Dosage: 300 MG/24 H
     Route: 042
     Dates: start: 20130723
  3. REMICADE [Suspect]
     Indication: PSORIASIS
     Route: 042
     Dates: start: 2011, end: 201212

REACTIONS (6)
  - Urticaria [Recovered/Resolved]
  - Chest discomfort [Recovered/Resolved]
  - Hypertension [Recovered/Resolved]
  - Pericarditis [Unknown]
  - Infusion related reaction [Recovered/Resolved]
  - Drug specific antibody present [Unknown]
